FAERS Safety Report 9993240 (Version 1)
Quarter: 2014Q1

REPORT INFORMATION
  Report Type: Report from Study
  Country: US (occurrence: US)
  Receive Date: 20140310
  Receipt Date: 20140310
  Transmission Date: 20141002
  Serious: No
  Sender: FDA-Public Use
  Company Number: US-ABBVIE-14P-163-1205068-00

PATIENT
  Age: 39 Year
  Sex: Female

DRUGS (1)
  1. LUPRON DEPOT [Suspect]
     Indication: ENDOMETRIOSIS
     Dates: start: 201309, end: 201401

REACTIONS (3)
  - Endometriosis [Not Recovered/Not Resolved]
  - Endometriosis [Recovered/Resolved]
  - Amenorrhoea [Not Recovered/Not Resolved]
